FAERS Safety Report 24806311 (Version 2)
Quarter: 2025Q2

REPORT INFORMATION
  Report Type: Spontaneous
  Country: US (occurrence: US)
  Receive Date: 20250103
  Receipt Date: 20250408
  Transmission Date: 20250716
  Serious: No
  Sender: NOVO NORDISK
  Company Number: US-NOVOPROD-1326160

PATIENT
  Age: 11 Year
  Sex: Male

DRUGS (7)
  1. RIVFLOZA [Suspect]
     Active Substance: NEDOSIRAN SODIUM
     Route: 058
     Dates: start: 20240816
  2. RIVFLOZA [Suspect]
     Active Substance: NEDOSIRAN SODIUM
     Route: 058
     Dates: start: 20240913
  3. RIVFLOZA [Suspect]
     Active Substance: NEDOSIRAN SODIUM
     Route: 058
     Dates: start: 20240920
  4. RIVFLOZA [Suspect]
     Active Substance: NEDOSIRAN SODIUM
     Indication: Primary hyperoxaluria
     Route: 058
     Dates: start: 20240719
  5. RIVFLOZA [Suspect]
     Active Substance: NEDOSIRAN SODIUM
     Route: 058
     Dates: start: 20241108
  6. RIVFLOZA [Suspect]
     Active Substance: NEDOSIRAN SODIUM
     Route: 058
     Dates: start: 20241211
  7. RIVFLOZA [Suspect]
     Active Substance: NEDOSIRAN SODIUM
     Route: 058
     Dates: start: 20241011

REACTIONS (3)
  - Urine oxalate increased [Recovered/Resolved]
  - Inappropriate schedule of product administration [Recovered/Resolved]
  - Off label use [Unknown]

NARRATIVE: CASE EVENT DATE: 20240816
